FAERS Safety Report 24748518 (Version 1)
Quarter: 2024Q4

REPORT INFORMATION
  Report Type: Spontaneous
  Country: ES (occurrence: ES)
  Receive Date: 20241218
  Receipt Date: 20241218
  Transmission Date: 20250114
  Serious: Yes (Other)
  Sender: DAIICHI
  Company Number: ES-DSJP-DS-2024-115141-ES

PATIENT
  Sex: Female
  Weight: 58 kg

DRUGS (4)
  1. TRASTUZUMAB [Suspect]
     Active Substance: TRASTUZUMAB
     Indication: Breast cancer metastatic
     Dosage: 5.4 MG, ONCE EVERY 3 WK
     Route: 065
     Dates: start: 20220915, end: 20230424
  2. TRASTUZUMAB DERUXTECAN [Suspect]
     Active Substance: TRASTUZUMAB DERUXTECAN
     Indication: Breast cancer metastatic
     Dosage: 5.4 MG, ONCE EVERY 3 WK
     Route: 065
     Dates: start: 20240424
  3. PERTUZUMAB [Suspect]
     Active Substance: PERTUZUMAB
     Indication: Breast cancer metastatic
     Dosage: 5.4 MG/KG, ONCE EVERY 3 WK
     Route: 065
     Dates: start: 20220915, end: 20230424
  4. PACLITAXEL [Suspect]
     Active Substance: PACLITAXEL
     Indication: Breast cancer metastatic
     Dosage: 5.4 MG, ONCE EVERY 3 WK (32 CYCLES)
     Route: 065
     Dates: start: 20220915, end: 20230424

REACTIONS (3)
  - Breast cancer metastatic [Unknown]
  - HER2 positive breast cancer [Unknown]
  - Off label use [Unknown]
